FAERS Safety Report 17808160 (Version 1)
Quarter: 2020Q2

REPORT INFORMATION
  Report Type: Spontaneous
  Country: US (occurrence: US)
  Receive Date: 20200520
  Receipt Date: 20200520
  Transmission Date: 20200714
  Serious: Yes (Life-Threatening, Other)
  Sender: FDA-Public Use
  Company Number: None

PATIENT
  Age: 42 Year
  Sex: Male
  Weight: 90 kg

DRUGS (1)
  1. VIVA ZEN KRATOM [Suspect]
     Active Substance: HERBALS\MITRAGYNINE
     Indication: STRESS

REACTIONS (4)
  - Aggression [None]
  - Drug dependence [None]
  - Economic problem [None]
  - Irritability [None]

NARRATIVE: CASE EVENT DATE: 20190526
